FAERS Safety Report 14667003 (Version 1)
Quarter: 2018Q1

REPORT INFORMATION
  Report Type: Spontaneous
  Country: US (occurrence: US)
  Receive Date: 20180322
  Receipt Date: 20180322
  Transmission Date: 20180509
  Serious: Yes (Other)
  Sender: FDA-Public Use
  Company Number: US-CIPLA LTD.-2018US12233

PATIENT

DRUGS (3)
  1. CARBOPLATIN. [Suspect]
     Active Substance: CARBOPLATIN
     Indication: ADENOSQUAMOUS CELL CARCINOMA
     Dosage: UNK
     Route: 065
  2. ERLOTINIB [Suspect]
     Active Substance: ERLOTINIB
     Indication: ADENOSQUAMOUS CELL CARCINOMA
     Dosage: UNK
     Route: 065
  3. PACLITAXEL. [Suspect]
     Active Substance: PACLITAXEL
     Indication: ADENOSQUAMOUS CELL CARCINOMA
     Dosage: UNK
     Route: 065

REACTIONS (2)
  - Neuropathy peripheral [Unknown]
  - Malignant neoplasm progression [Unknown]
